FAERS Safety Report 6509472-X (Version None)
Quarter: 2009Q4

REPORT INFORMATION
  Report Type: 
  Country: None (occurrence: None)
  Receive Date: 20091217
  Receipt Date: 20091210
  Transmission Date: 20100525
  Serious: Yes (Death, Hospitalization, Other)
  Sender: FDA-Public Use
  Company Number: CLOF-1000795

PATIENT
  Age: 70 Year
  Sex: Male

DRUGS (2)
  1. EVOLTRA (CLOFARABINE) SOLUTION FOR NFUSION [Suspect]
     Indication: ACUTE MYELOID LEUKAEMIA
     Dates: start: 20091106, end: 20091110
  2. DAUNORUBICIN HCL [Suspect]
     Indication: ACUTE MYELOID LEUKAEMIA

REACTIONS (9)
  - BLOOD CREATININE INCREASED [None]
  - CORYNEBACTERIUM SEPSIS [None]
  - DRUG ADMINISTRATION ERROR [None]
  - ENTEROCOCCAL SEPSIS [None]
  - GASTROINTESTINAL HAEMORRHAGE [None]
  - PNEUMONIA [None]
  - RENAL FAILURE ACUTE [None]
  - SEPSIS [None]
  - STENOTROPHOMONAS INFECTION [None]
